FAERS Safety Report 7653251-7 (Version None)
Quarter: 2011Q3

REPORT INFORMATION
  Report Type: 
  Country: None (occurrence: None)
  Receive Date: 20110803
  Receipt Date: 20100125
  Transmission Date: 20111222
  Serious: No
  Sender: FDA-Public Use
  Company Number: US-BAYER-201012365NA

PATIENT
  Age: 29 Year
  Sex: Female

DRUGS (1)
  1. YAZ [Suspect]
     Indication: ACNE
     Dosage: 1 DF, QD

REACTIONS (9)
  - CRYING [None]
  - HEADACHE [None]
  - ABDOMINAL PAIN LOWER [None]
  - MOOD ALTERED [None]
  - DIARRHOEA [None]
  - FATIGUE [None]
  - DEPRESSED MOOD [None]
  - GASTRIC DISORDER [None]
  - ASTHENIA [None]
